FAERS Safety Report 5847486-3 (Version None)
Quarter: 2008Q3

REPORT INFORMATION
  Report Type: 
  Country: None (occurrence: None)
  Receive Date: 20080814
  Receipt Date: 20080804
  Transmission Date: 20090109
  Serious: Yes (Hospitalization)
  Sender: FDA-Public Use
  Company Number: 1-16483509/MED-08150

PATIENT
  Sex: Male
  Weight: 77.1115 kg

DRUGS (2)
  1. BACTRIM [Suspect]
     Indication: ARTHROPOD BITE
     Dosage: ORAL
     Route: 048
     Dates: start: 20080721, end: 20080727
  2. BACTRIM [Suspect]
     Indication: OPEN WOUND
     Dosage: ORAL
     Route: 048
     Dates: start: 20080721, end: 20080727

REACTIONS (5)
  - DEHYDRATION [None]
  - HEPATITIS [None]
  - PLATELET COUNT DECREASED [None]
  - PYREXIA [None]
  - RASH [None]
